FAERS Safety Report 23401788 (Version 4)
Quarter: 2024Q2

REPORT INFORMATION
  Report Type: Spontaneous
  Country: CO (occurrence: CO)
  Receive Date: 20240115
  Receipt Date: 20240620
  Transmission Date: 20240715
  Serious: Yes (Hospitalization, Other)
  Sender: FDA-Public Use
  Company Number: CO-PFIZER INC-PV202400003666

PATIENT
  Age: 7 Year
  Sex: Male

DRUGS (2)
  1. GENOTROPIN [Suspect]
     Active Substance: SOMATROPIN
     Dosage: UNK, DAILY
     Route: 058
     Dates: start: 20221204, end: 20230203
  2. GENOTROPIN [Suspect]
     Active Substance: SOMATROPIN
     Dosage: 0.5 MG, DAILY
     Dates: end: 20230215

REACTIONS (5)
  - Pneumonia [Unknown]
  - Acute respiratory failure [Unknown]
  - Liver injury [Unknown]
  - Renal injury [Unknown]
  - Diabetes mellitus [Unknown]
